FAERS Safety Report 14493972 (Version 1)
Quarter: 2018Q1

REPORT INFORMATION
  Report Type: Spontaneous
  Country: US (occurrence: US)
  Receive Date: 20180206
  Receipt Date: 20180206
  Transmission Date: 20180509
  Serious: Yes (Other)
  Sender: FDA-Public Use
  Company Number: US-BAYER-2018-019699

PATIENT
  Age: 76 Year
  Sex: Male

DRUGS (2)
  1. SPIRONOLACTON [Suspect]
     Active Substance: SPIRONOLACTONE
  2. ESTRADIOL HEMIHYDRATE [Suspect]
     Active Substance: ESTRADIOL HEMIHYDRATE
     Route: 062

REACTIONS (2)
  - Hyperkalaemia [None]
  - Inflammatory myofibroblastic tumour [None]
